FAERS Safety Report 7900204-7 (Version None)
Quarter: 2011Q4

REPORT INFORMATION
  Report Type: 
  Country: None (occurrence: None)
  Receive Date: 20111104
  Receipt Date: 20111019
  Transmission Date: 20120403
  Serious: Yes (Hospitalization)
  Sender: FDA-Public Use
  Company Number: IBUP20110007

PATIENT
  Age: 35 Year
  Sex: Male

DRUGS (1)
  1. IBUPROFEN [Suspect]
     Indication: BACK PAIN
     Dosage: }30 TABLETS PER DAY, ORAL
     Route: 048

REACTIONS (8)
  - OVERDOSE [None]
  - QUADRIPLEGIA [None]
  - BLOOD CREATINE PHOSPHOKINASE INCREASED [None]
  - HYPOKALAEMIA [None]
  - RED BLOOD CELLS URINE POSITIVE [None]
  - METABOLIC ACIDOSIS [None]
  - ELECTROCARDIOGRAM U-WAVE ABNORMALITY [None]
  - ELECTROCARDIOGRAM QT PROLONGED [None]
